FAERS Safety Report 24830692 (Version 1)
Quarter: 2025Q1

REPORT INFORMATION
  Report Type: Spontaneous
  Country: HK (occurrence: HK)
  Receive Date: 20250110
  Receipt Date: 20250110
  Transmission Date: 20250409
  Serious: Yes (Hospitalization)
  Sender: RANBAXY
  Company Number: HK-SUN PHARMACEUTICAL INDUSTRIES LTD-2024RR-488329

PATIENT
  Age: 16 Year
  Sex: Female

DRUGS (5)
  1. AMLODIPINE [Suspect]
     Active Substance: AMLODIPINE BESYLATE
     Indication: Borderline personality disorder
     Route: 065
  2. METFORMIN [Suspect]
     Active Substance: METFORMIN HYDROCHLORIDE
     Indication: Product used for unknown indication
     Route: 065
  3. NOREPINEPHRINE BITARTRATE [Suspect]
     Active Substance: NOREPINEPHRINE BITARTRATE
     Indication: Product used for unknown indication
     Route: 065
  4. EPINEPHRINE [Suspect]
     Active Substance: EPINEPHRINE
     Indication: Product used for unknown indication
     Route: 065
  5. VASOPRESSIN [Suspect]
     Active Substance: VASOPRESSIN
     Indication: Product used for unknown indication
     Route: 065

REACTIONS (4)
  - Suicide attempt [Recovering/Resolving]
  - Overdose [Recovering/Resolving]
  - Acute kidney injury [Recovering/Resolving]
  - Drug ineffective [Recovering/Resolving]
